FAERS Safety Report 4642707-7 (Version None)
Quarter: 2005Q2

REPORT INFORMATION
  Report Type: 
  Country: None (occurrence: None)
  Receive Date: 20050422
  Receipt Date: 20050411
  Transmission Date: 20051028
  Serious: Yes (Hospitalization)
  Sender: FDA-Public Use
  Company Number: US-JNJFOC-20050205196

PATIENT
  Sex: Female
  Weight: 72.58 kg

DRUGS (10)
  1. DURAGESIC-100 [Suspect]
     Route: 062
     Dates: start: 20040601
  2. DURAGESIC-100 [Suspect]
     Route: 062
     Dates: start: 20040601
  3. DURAGESIC-100 [Suspect]
     Route: 062
     Dates: start: 20040601
  4. DURAGESIC-100 [Suspect]
     Route: 062
     Dates: start: 20040601
  5. PREDNISONE [Concomitant]
     Dosage: DOSAGE HAS VARIED FROM 10 MG TO 40 MG, ORAL
     Route: 049
     Dates: start: 20040601
  6. PREDNISONE [Concomitant]
     Dosage: MEDICATION ADMINISTERED IN HOSPITAL, EXACT DATES AND DOSAGES UNKNOWN
     Route: 030
     Dates: start: 20040601, end: 20050101
  7. ALTACE [Concomitant]
     Indication: HYPERTENSION
     Route: 049
     Dates: start: 20040601
  8. COREG [Concomitant]
     Indication: HYPERTENSION
     Route: 049
     Dates: start: 20040601
  9. ISOSORBIDE [Concomitant]
     Indication: HYPERTENSION
     Route: 049
     Dates: start: 20040601
  10. HYDROCODONE BITARTRATE [Concomitant]
     Indication: PAIN
     Dosage: 10/325 MG, 2 TO 3 EVERY 24 HOURS
     Route: 049
     Dates: start: 20040601

REACTIONS (2)
  - CHEST WALL PAIN [None]
  - WEIGHT INCREASED [None]
